FAERS Safety Report 23229783 (Version 1)
Quarter: 2023Q4

REPORT INFORMATION
  Report Type: Spontaneous
  Country: US (occurrence: None)
  Receive Date: 20231127
  Receipt Date: 20231127
  Transmission Date: 20240110
  Serious: No
  Sender: FDA-Public Use
  Company Number: US-ROCHE-3393803

PATIENT
  Age: 72 Year
  Sex: Female

DRUGS (6)
  1. LUCENTIS [Suspect]
     Active Substance: RANIBIZUMAB
     Indication: Neovascular age-related macular degeneration
     Route: 065
  2. LUCENTIS [Suspect]
     Active Substance: RANIBIZUMAB
  3. LUCENTIS [Suspect]
     Active Substance: RANIBIZUMAB
  4. LUCENTIS [Suspect]
     Active Substance: RANIBIZUMAB
     Dosage: INJECTION
     Route: 050
  5. LUCENTIS [Suspect]
     Active Substance: RANIBIZUMAB
  6. LUCENTIS [Suspect]
     Active Substance: RANIBIZUMAB

REACTIONS (2)
  - Expired product administered [Unknown]
  - No adverse event [Unknown]
